FAERS Safety Report 4336356-8 (Version None)
Quarter: 2004Q2

REPORT INFORMATION
  Report Type: 
  Country: None (occurrence: None)
  Receive Date: 20040407
  Receipt Date: 20040323
  Transmission Date: 20050107
  Serious: Yes (Other)
  Sender: FDA-Public Use
  Company Number: US_0402100424

PATIENT
  Age: 44 Year
  Sex: Male

DRUGS (2)
  1. CIALIS [Suspect]
     Indication: ERECTILE DYSFUNCTION
     Dosage: 10 MG
  2. OLMESARTAN [Concomitant]

REACTIONS (3)
  - ALCOHOL USE [None]
  - HYPOTENSION [None]
  - SYNCOPE [None]
